FAERS Safety Report 24781001 (Version 2)
Quarter: 2025Q1

REPORT INFORMATION
  Report Type: Spontaneous
  Country: US (occurrence: US)
  Receive Date: 20241227
  Receipt Date: 20250122
  Transmission Date: 20250408
  Serious: No
  Sender: HETERO
  Company Number: US-HETERO-HET2024US04928

PATIENT
  Age: 87 Year
  Sex: Female

DRUGS (4)
  1. DABIGATRAN ETEXILATE [Suspect]
     Active Substance: DABIGATRAN ETEXILATE
     Indication: Thrombosis
     Route: 048
     Dates: start: 20241126
  2. DABIGATRAN ETEXILATE [Suspect]
     Active Substance: DABIGATRAN ETEXILATE
     Route: 048
  3. VALTARAN [Concomitant]
     Indication: Product used for unknown indication
     Route: 065
  4. PROPANE [Concomitant]
     Active Substance: PROPANE
     Indication: Product used for unknown indication
     Route: 065

REACTIONS (3)
  - Vomiting [Not Recovered/Not Resolved]
  - Abdominal pain upper [Not Recovered/Not Resolved]
  - Intentional product use issue [Unknown]

NARRATIVE: CASE EVENT DATE: 20241126
